FAERS Safety Report 5782586-8 (Version None)
Quarter: 2008Q2

REPORT INFORMATION
  Report Type: 
  Country: None (occurrence: None)
  Receive Date: 20080624
  Receipt Date: 20080611
  Transmission Date: 20081010
  Serious: Yes (Hospitalization)
  Sender: FDA-Public Use
  Company Number: US-PFIZER INC-2008050052

PATIENT
  Sex: Female
  Weight: 49.4 kg

DRUGS (14)
  1. LYRICA [Suspect]
     Indication: FIBROMYALGIA
     Dates: start: 20070901, end: 20080201
  2. LYRICA [Suspect]
     Indication: NEUROPATHY PERIPHERAL
  3. LASIX [Concomitant]
  4. POTASSIUM CHLORIDE [Concomitant]
  5. DAYPRO [Concomitant]
  6. CYMBALTA [Concomitant]
  7. ACTOS [Concomitant]
  8. CRESTOR [Concomitant]
  9. PRILOSEC [Concomitant]
  10. ATIVAN [Concomitant]
  11. LUNESTA [Concomitant]
  12. MAXALT [Concomitant]
  13. ALL OTHER THERAPEUTIC PRODUCTS [Concomitant]
  14. METFORMIN [Concomitant]

REACTIONS (6)
  - ACCIDENT [None]
  - FALL [None]
  - FEMUR FRACTURE [None]
  - HUMERUS FRACTURE [None]
  - INJURY [None]
  - UPPER LIMB FRACTURE [None]
